FAERS Safety Report 25166584 (Version 1)
Quarter: 2025Q2

REPORT INFORMATION
  Report Type: Spontaneous
  Country: US (occurrence: US)
  Receive Date: 20250407
  Receipt Date: 20250407
  Transmission Date: 20250716
  Serious: Yes (Hospitalization, Other)
  Sender: ZYDUS PHARM
  Company Number: US-CADILA HEALTHCARE LIMITED-US-ZYDUS-121509

PATIENT

DRUGS (6)
  1. SPIRONOLACTONE [Suspect]
     Active Substance: SPIRONOLACTONE
     Indication: Hypertension
     Route: 042
  2. SPIRONOLACTONE [Suspect]
     Active Substance: SPIRONOLACTONE
     Indication: Atrial fibrillation
  3. SPIRONOLACTONE [Suspect]
     Active Substance: SPIRONOLACTONE
     Indication: Ejection fraction decreased
  4. BUMETANIDE [Suspect]
     Active Substance: BUMETANIDE
     Indication: Hypertension
     Route: 042
  5. BUMETANIDE [Suspect]
     Active Substance: BUMETANIDE
     Indication: Atrial fibrillation
  6. BUMETANIDE [Suspect]
     Active Substance: BUMETANIDE
     Indication: Ejection fraction decreased

REACTIONS (1)
  - Hypokalaemia [Unknown]
